FAERS Safety Report 8930016 (Version 1)
Quarter: 2012Q4

REPORT INFORMATION
  Report Type: 
  Country: DE (occurrence: DE)
  Receive Date: 20121128
  Receipt Date: 20121128
  Transmission Date: 20130627
  Serious: Yes (Congenital Anomaly)
  Sender: FDA-Public Use
  Company Number: GXKR2012DE003621

PATIENT
  Sex: Female
  Weight: 3.2 kg

DRUGS (2)
  1. CITALOPRAM [Suspect]
     Dosage: maternal dose: 20mg/day; dose reduction to 10 mg/day in second trimester
     Route: 064
  2. IBUPROFEN [Concomitant]
     Dosage: maternal dose: 400mg/day (on demand)
     Route: 064

REACTIONS (3)
  - Double outlet right ventricle [Recovered/Resolved with Sequelae]
  - Ventricular septal defect [Recovered/Resolved with Sequelae]
  - Foetal exposure during pregnancy [Unknown]
